FAERS Safety Report 4446189-X (Version None)
Quarter: 2004Q3

REPORT INFORMATION
  Report Type: 
  Country: None (occurrence: None)
  Receive Date: 20040907
  Receipt Date: 20040827
  Transmission Date: 20050211
  Serious: Yes (Congenital Anomaly, Other)
  Sender: FDA-Public Use
  Company Number: USA-2004-0016636

PATIENT
  Sex: Male
  Weight: 3.2 kg

DRUGS (2)
  1. OXYCONTIN [Suspect]
     Indication: DRUG EXPOSURE DURING PREGNANCY
     Dosage: SEE TEXT, TRANSPLACENTAL
     Route: 064
  2. PROVIGIL [Suspect]
     Indication: DRUG EXPOSURE DURING PREGNANCY
     Dosage: SEE TEXT, TRANSPLACENTAL
     Route: 064

REACTIONS (3)
  - CHORDEE [None]
  - DRUG EXPOSURE DURING PREGNANCY [None]
  - HYPOSPADIAS [None]
